FAERS Safety Report 14355982 (Version 1)
Quarter: 2018Q1

REPORT INFORMATION
  Report Type: Report from Study
  Country: CA (occurrence: CA)
  Receive Date: 20180105
  Receipt Date: 20180105
  Transmission Date: 20180509
  Serious: Yes (Other)
  Sender: FDA-Public Use
  Company Number: CA-SHIRE-CA201735560

PATIENT

DRUGS (1)
  1. FEIBA NF [Suspect]
     Active Substance: ANTI-INHIBITOR COAGULANT COMPLEX
     Indication: HAEMOPHILIA
     Dosage: 75000 IU, 3X A WEEK (MONDAY, WEDNESDAY, FRIDAY)
     Route: 042
     Dates: start: 20171220

REACTIONS (1)
  - Thrombosis [Not Recovered/Not Resolved]
